FAERS Safety Report 8559419-X (Version None)
Quarter: 2012Q3

REPORT INFORMATION
  Report Type: 
  Country: None (occurrence: None)
  Receive Date: 20120802
  Receipt Date: 20120725
  Transmission Date: 20120928
  Serious: Yes (Hospitalization)
  Sender: FDA-Public Use
  Company Number: US-BAYER-2011-005762

PATIENT
  Age: 44 Year
  Sex: Female
  Weight: 68 kg

DRUGS (9)
  1. NSAID'S [Concomitant]
     Dosage: UNK
     Dates: start: 20060101
  2. DARVOCET-N 50 [Concomitant]
     Dosage: 100 MG, 1 TABLET EVERY 4 TO 6 HOURS
     Route: 048
     Dates: start: 20020118, end: 20060817
  3. SILVER SULFADIAZINE [Concomitant]
     Dosage: UNK UNK, TID
     Route: 061
     Dates: start: 20030505, end: 20030609
  4. CIPROFLOXACIN [Concomitant]
  5. MOTRIN [Concomitant]
  6. ANTIBIOTICS [Concomitant]
     Dosage: UNK
     Dates: start: 20060101
  7. YASMIN [Suspect]
     Indication: CONTRACEPTION
     Route: 048
     Dates: start: 20010101, end: 20060101
  8. ALLEGRA [Concomitant]
     Dosage: UNK
     Dates: start: 20010101, end: 20060101
  9. DARVOCET-N 50 [Concomitant]
     Dosage: 650 MG, 1 TABLET EVERY 4 TO 6 HOURS
     Route: 048
     Dates: start: 20020118, end: 20060817

REACTIONS (4)
  - EMOTIONAL DISTRESS [None]
  - DEEP VEIN THROMBOSIS [None]
  - ANXIETY [None]
  - PAIN [None]
